FAERS Safety Report 7006609-3 (Version None)
Quarter: 2010Q3

REPORT INFORMATION
  Report Type: 
  Country: None (occurrence: None)
  Receive Date: 20100921
  Receipt Date: 20100910
  Transmission Date: 20110219
  Serious: Yes (Other)
  Sender: FDA-Public Use
  Company Number: PHHY2010RU59912

PATIENT
  Age: 56 Year
  Sex: Female

DRUGS (3)
  1. ACLASTA [Suspect]
     Indication: OSTEOPOROSIS
     Dosage: UNK
     Dates: start: 20090604
  2. ACLASTA [Suspect]
     Dosage: UNK
     Dates: start: 20100831
  3. CALCIUM D3 [Concomitant]

REACTIONS (1)
  - CARBOHYDRATE ANTIGEN 19-9 INCREASED [None]
